FAERS Safety Report 23787996 (Version 1)
Quarter: 2024Q2

REPORT INFORMATION
  Report Type: Spontaneous
  Country: CA (occurrence: CA)
  Receive Date: 20240426
  Receipt Date: 20240426
  Transmission Date: 20240716
  Serious: Yes (Other)
  Sender: FDA-Public Use
  Company Number: CA-BRISTOL-MYERS SQUIBB COMPANY-2024-060667

PATIENT
  Age: 80 Year
  Sex: Female

DRUGS (5)
  1. PACLITAXEL [Suspect]
     Active Substance: PACLITAXEL
     Indication: Product used for unknown indication
  2. PACLITAXEL [Concomitant]
     Active Substance: PACLITAXEL
     Indication: Female reproductive neoplasm
     Dosage: LIQUID INTRAVENOUS
     Route: 041
  3. DEXAMETHASONE [Concomitant]
     Active Substance: DEXAMETHASONE
     Indication: Product used for unknown indication
     Dosage: LIQUID INTRAVENOUS
     Route: 041
  4. DIPHENHYDRAMINE [Concomitant]
     Active Substance: DIPHENHYDRAMINE
     Indication: Product used for unknown indication
     Dosage: LIQUID INTRAVENOUS
     Route: 041
  5. FAMOTIDINE [Concomitant]
     Active Substance: FAMOTIDINE
     Indication: Product used for unknown indication
     Dosage: LIQUID INTRAVENOUS
     Route: 041

REACTIONS (6)
  - Bradycardia [Unknown]
  - Depressed level of consciousness [Unknown]
  - Pruritus [Unknown]
  - Suffocation feeling [Unknown]
  - Unresponsive to stimuli [Unknown]
  - Blood pressure immeasurable [Unknown]
